FAERS Safety Report 8428949 (Version 5)
Quarter: 2012Q4

REPORT INFORMATION
  Report Type: Report from Study
  Country: FR (occurrence: FR)
  Receive Date: 20120227
  Receipt Date: 20121226
  Transmission Date: 20130627
  Serious: Yes (Hospitalization)
  Sender: FDA-Public Use
  Company Number: PHHO2012FR003043

PATIENT
  Age: 14 Year
  Sex: Male
  Weight: 40.5 kg

DRUGS (8)
  1. ZOLEDRONATE [Suspect]
     Indication: BONE SARCOMA
     Dosage: 4 mg, UNK
     Route: 065
     Dates: start: 20110720
  2. METHOTREXATE [Suspect]
     Indication: BONE SARCOMA
     Dosage: 17 g, UNK
     Route: 065
     Dates: start: 20110726, end: 20120220
  3. METHOTREXATE [Suspect]
     Dosage: 17 g, UNK
     Route: 065
  4. CISPLATIN [Suspect]
     Indication: BONE SARCOMA
     Dosage: 163 mg, UNK
     Route: 065
     Dates: start: 20111121
  5. ETOPOSIDE [Suspect]
     Indication: BONE SARCOMA
     Dosage: 110 mg, UNK
     Route: 065
     Dates: start: 20110927, end: 20110930
  6. IFOSFAMIDE [Suspect]
     Indication: BONE SARCOMA
     Dosage: 4.4 g, UNK
     Route: 065
     Dates: start: 20110929, end: 20110930
  7. ADRIAMYCIN [Concomitant]
     Indication: BONE SARCOMA
     Dosage: 102 mg, UNK
     Route: 065
     Dates: start: 20111121
  8. DIURETICS [Concomitant]

REACTIONS (2)
  - Haematoma [Recovered/Resolved with Sequelae]
  - Renal tubular disorder [Not Recovered/Not Resolved]
